FAERS Safety Report 8830341 (Version 2)
Quarter: 2012Q4

REPORT INFORMATION
  Report Type: Spontaneous
  Country: US (occurrence: None)
  Receive Date: 20121004
  Receipt Date: 20121011
  Transmission Date: 20130627
  Serious: Yes (Hospitalization)
  Sender: FDA-Public Use
  Company Number: JPI-P-025387

PATIENT
  Age: 56 Year
  Sex: Female

DRUGS (3)
  1. XYREM (500 MILLIGRAM/ MILLILITERS, SOLUTION) (SODIUM OXYBATE) [Suspect]
     Indication: INSOMNIA
     Dosage: 6 gm (3 gm, 2 in 1 D), Oral
     Dates: start: 20120731
  2. XYREM (500 MILLIGRAM/ MILLILITERS, SOLUTION) (SODIUM OXYBATE) [Suspect]
     Indication: INSOMNIA
     Dosage: unspecified dose change, oral
  3. XYREM (500 MILLIGRAM/ MILLILITERS, SOLUTION) (SODIUM OXYBATE) [Suspect]
     Indication: INSOMNIA
     Dosage: 9 gm (4.5 gm, 2 in 1 D), Oral
     Dates: start: 20120821

REACTIONS (5)
  - Dehydration [None]
  - Dry mouth [None]
  - Drug ineffective for unapproved indication [None]
  - Feeling abnormal [None]
  - Wrong technique in drug usage process [None]
